FAERS Safety Report 6370855-2 (Version None)
Quarter: 2009Q3

REPORT INFORMATION
  Report Type: 
  Country: None (occurrence: None)
  Receive Date: 20090923
  Receipt Date: 20071227
  Transmission Date: 20100115
  Serious: Yes (Other)
  Sender: FDA-Public Use
  Company Number: US-ASTRAZENECA-2006UW24858

PATIENT
  Age: 15417 Day
  Sex: Female
  Weight: 55.3 kg

DRUGS (6)
  1. SEROQUEL [Suspect]
     Dosage: 100 MG 1/2, BID
     Route: 048
     Dates: start: 20050426
  2. SEROQUEL [Suspect]
     Dosage: DOES NOT RECALL DOSES, DATES OF USE, OR INDICATION FOR USE
     Route: 048
  3. ZYPREXA [Suspect]
     Dosage: 5 MG TO 15 MG
     Dates: start: 20010125
  4. PROZAC [Concomitant]
     Indication: DEPRESSION
     Dosage: 20 MG TO 60 MG
     Dates: start: 20030119
  5. NEURONTIN [Concomitant]
     Indication: SLEEP DISORDER
     Dates: start: 20011105
  6. NEURONTIN [Concomitant]
     Indication: MAJOR DEPRESSION
     Dates: start: 20011105

REACTIONS (1)
  - PANCREATITIS [None]
